FAERS Safety Report 18591257 (Version 1)
Quarter: 2020Q4

REPORT INFORMATION
  Report Type: Spontaneous
  Country: HR (occurrence: HR)
  Receive Date: 20201208
  Receipt Date: 20201208
  Transmission Date: 20210114
  Serious: Yes (Other)
  Sender: FDA-Public Use
  Company Number: HR-PFIZER INC-2020472645

PATIENT
  Sex: Female

DRUGS (12)
  1. LERCANIL [Concomitant]
     Active Substance: LERCANIDIPINE HYDROCHLORIDE
     Dosage: UNK
  2. TRAJENTA [Concomitant]
     Active Substance: LINAGLIPTIN
     Dosage: UNK
  3. FOLACIN [FOLIC ACID] [Concomitant]
     Active Substance: FOLIC ACID
     Dosage: UNK
  4. TULIP [Concomitant]
     Dosage: UNK
  5. PALBOCICLIB [Suspect]
     Active Substance: PALBOCICLIB
     Dosage: 100 MG, CYCLIC (100 MG AT MORNING WITH FOOD/ 3 WEEKS, THEN 1 WEEK PAUSE)
     Dates: start: 202003
  6. ERYTHROPOETIN [Concomitant]
     Active Substance: ERYTHROPOIETIN
     Dosage: UNK
  7. GLURENORM [Concomitant]
     Active Substance: GLIQUIDONE
     Dosage: UNK
  8. FURSEMID [Concomitant]
     Active Substance: FUROSEMIDE
     Dosage: UNK
  9. FULVESTRANT. [Suspect]
     Active Substance: FULVESTRANT
     Dosage: 250 MG, 2X/DAY LAG, 1/14/28 DAY THEN EVERY 28 DAYS
     Route: 030
     Dates: start: 202003
  10. INSULIN [Concomitant]
     Active Substance: INSULIN NOS
     Dosage: UNK
  11. PHYSIOTENS [Concomitant]
     Active Substance: MOXONIDINE
     Dosage: UNK
  12. HEFEROL [Concomitant]
     Active Substance: FERROUS FUMARATE
     Dosage: UNK

REACTIONS (6)
  - Blood creatinine increased [Recovering/Resolving]
  - Leukopenia [Recovering/Resolving]
  - Neutropenia [Recovering/Resolving]
  - Anaemia [Recovering/Resolving]
  - Blood urea increased [Recovering/Resolving]
  - Fatigue [Recovering/Resolving]

NARRATIVE: CASE EVENT DATE: 2020
